FAERS Safety Report 11203093 (Version 1)
Quarter: 2015Q2

REPORT INFORMATION
  Report Type: Spontaneous
  Country: US (occurrence: None)
  Receive Date: 20150617
  Receipt Date: 20150617
  Transmission Date: 20150821
  Serious: Yes (Other)
  Sender: FDA-Public Use
  Company Number: None

PATIENT
  Age: 79 Year
  Sex: Female
  Weight: 48.99 kg

DRUGS (12)
  1. AMLODIPINE [Suspect]
     Active Substance: AMLODIPINE BESYLATE
     Indication: HYPERTENSION
     Route: 048
     Dates: start: 20150424, end: 20150530
  2. GLUCOSAMINE WITH MSM [Concomitant]
  3. MAGNESIUM [Concomitant]
     Active Substance: MAGNESIUM
  4. MSM [Concomitant]
     Active Substance: DIMETHYL SULFONE
  5. RECLAST [Concomitant]
     Active Substance: ZOLEDRONIC ACID
  6. FISH OIL [Concomitant]
     Active Substance: FISH OIL
  7. DIGEST WELLZYME [Concomitant]
  8. MAGNESIUM + ZINC WITH VITAMIN D [Concomitant]
  9. METHIMAZOLE. [Concomitant]
     Active Substance: METHIMAZOLE
  10. PHOSPHATIDYLSERINE CALLED NEURO PS [Concomitant]
  11. ACYCLOVIR (ZOVIRAX) [Concomitant]
  12. CALCIUM CITRATE [Concomitant]
     Active Substance: CALCIUM CITRATE

REACTIONS (9)
  - Tongue disorder [None]
  - Abdominal pain upper [None]
  - Dizziness [None]
  - Irritability [None]
  - Pruritus [None]
  - Suicidal ideation [None]
  - Speech disorder [None]
  - Fatigue [None]
  - Depressed mood [None]

NARRATIVE: CASE EVENT DATE: 20150424
